FAERS Safety Report 5532537-6 (Version None)
Quarter: 2007Q4

REPORT INFORMATION
  Report Type: 
  Country: None (occurrence: None)
  Receive Date: 20071203
  Receipt Date: 20071130
  Transmission Date: 20080405
  Serious: Yes (Hospitalization)
  Sender: FDA-Public Use
  Company Number: DE-BOEHRINGER INGELHEIM PHARMACEUTICALS, INC.-2007-DE-00247DE

PATIENT
  Sex: Female
  Weight: 135 kg

DRUGS (6)
  1. CATAPRESAN 150 [Suspect]
     Route: 048
  2. CHLORPROTHIXEN [Suspect]
     Route: 048
  3. GLIMEPIRIDE [Suspect]
     Route: 048
  4. HALOPERIDOL [Suspect]
     Route: 048
  5. METFORMIN HCL [Suspect]
     Route: 048
  6. PROMETHAZINE [Suspect]
     Route: 048

REACTIONS (4)
  - DRUG ABUSE [None]
  - FATIGUE [None]
  - OVERDOSE [None]
  - SUICIDE ATTEMPT [None]
